FAERS Safety Report 9548593 (Version 1)
Quarter: 2013Q3

REPORT INFORMATION
  Report Type: Spontaneous
  Country: US (occurrence: None)
  Receive Date: 20130919
  Receipt Date: 20130919
  Transmission Date: 20140515
  Serious: Yes (Other)
  Sender: FDA-Public Use
  Company Number: 1893075

PATIENT
  Age: 22 Year
  Sex: Male

DRUGS (5)
  1. METHOTREXATE [Suspect]
     Indication: CROHN^S DISEASE
     Dosage: 10MG MILLIGRAM (S), 1 WEEK, UNKNOWN, UNKNOWN
  2. INFLIXIMAB [Suspect]
     Indication: CROHN^S DISEASE
     Dosage: UNKNOWN, UNKNOWN, UNKNOWN
  3. MERCAPTOPURINE [Suspect]
     Indication: CROHN^S DISEASE
     Dosage: 75MG MILLIGRAM(S), 1 DAY, UNKNOWN, UNKNOWN
  4. MERCAPTOPURINE [Suspect]
     Dosage: 75MG MILLIGRAM(S), 1 DAY, UNKNOWN, UNKNOWN
  5. CORTICOSTEROIDS [Suspect]
     Indication: CROHN^S DISEASE
     Dosage: UNKNOWN, UNKNOWN, UNKNOWN

REACTIONS (1)
  - Hodgkin^s disease [None]
